FAERS Safety Report 16763832 (Version 4)
Quarter: 2020Q3

REPORT INFORMATION
  Report Type: Spontaneous
  Country: US (occurrence: US)
  Receive Date: 20190902
  Receipt Date: 20200925
  Transmission Date: 20201102
  Serious: Yes (Other)
  Sender: FDA-Public Use
  Company Number: US-GILEAD-2019-0425730

PATIENT
  Sex: Male
  Weight: 81.63 kg

DRUGS (15)
  1. BIKTARVY [Concomitant]
     Active Substance: BICTEGRAVIR SODIUM\EMTRICITABINE\TENOFOVIR ALAFENAMIDE FUMARATE
  2. FIORICET [Concomitant]
     Active Substance: ACETAMINOPHEN\BUTALBITAL\CAFFEINE
  3. DESCOVY [Concomitant]
     Active Substance: EMTRICITABINE\TENOFOVIR ALAFENAMIDE FUMARATE
  4. IMITREX [Concomitant]
     Active Substance: SUMATRIPTAN SUCCINATE
  5. PENICILLIN [PENICILLIN NOS] [Concomitant]
     Active Substance: PENICILLIN
  6. METRONIDAZOLE. [Concomitant]
     Active Substance: METRONIDAZOLE
  7. NAPROSYN [Concomitant]
     Active Substance: NAPROXEN
  8. DIPHENHYDRAMINE HCL [Concomitant]
     Active Substance: DIPHENHYDRAMINE HYDROCHLORIDE
  9. TRUVADA [Suspect]
     Active Substance: EMTRICITABINE\TENOFOVIR DISOPROXIL FUMARATE
     Indication: HIV INFECTION
     Dosage: UNK
     Route: 048
     Dates: start: 201605, end: 201707
  10. CEFTRIAXONE. [Concomitant]
     Active Substance: CEFTRIAXONE
  11. CALCIUM + VIT D [Concomitant]
     Active Substance: CALCIUM\VITAMIN D
     Dosage: UNK
     Dates: start: 2017
  12. TIVICAY [Concomitant]
     Active Substance: DOLUTEGRAVIR SODIUM
  13. NICORETTE [NICOTINE] [Concomitant]
  14. ACETAMINOPHEN. [Concomitant]
     Active Substance: ACETAMINOPHEN
  15. NEOMYCIN AND POLYMYXIN B SULFATES AND HYDROCORTISONE [Concomitant]
     Active Substance: HYDROCORTISONE\NEOMYCIN SULFATE\POLYMYXIN B SULFATE

REACTIONS (9)
  - Emotional distress [Unknown]
  - Anhedonia [Unknown]
  - Depression [Not Recovered/Not Resolved]
  - Anxiety [Unknown]
  - Bone density decreased [Unknown]
  - Economic problem [Unknown]
  - Pain [Unknown]
  - Osteonecrosis [Unknown]
  - Tooth loss [Not Recovered/Not Resolved]

NARRATIVE: CASE EVENT DATE: 2016
